FAERS Safety Report 17646277 (Version 1)
Quarter: 2020Q2

REPORT INFORMATION
  Report Type: Spontaneous
  Country: JP (occurrence: JP)
  Receive Date: 20200408
  Receipt Date: 20200408
  Transmission Date: 20200713
  Serious: Yes (Hospitalization)
  Sender: FDA-Public Use
  Company Number: JP-TEVA-2020-JP-1218841

PATIENT
  Age: 46 Year
  Sex: Female

DRUGS (2)
  1. OXALIPLATIN. [Suspect]
     Active Substance: OXALIPLATIN
     Indication: RECTAL CANCER STAGE III
     Dosage: ON DAY 0-DAY 14 MORNING
     Route: 050
     Dates: start: 201707
  2. CAPECITABINE. [Concomitant]
     Active Substance: CAPECITABINE
     Indication: RECTAL CANCER STAGE III
     Dosage: ON DAY 0 EVENING-DAY 14 MORNING
     Route: 065
     Dates: start: 201707

REACTIONS (3)
  - Thrombocytopenia [Recovered/Resolved]
  - Anaphylactic reaction [Recovering/Resolving]
  - Drug-induced liver injury [Recovered/Resolved]
